FAERS Safety Report 4615975-5 (Version None)
Quarter: 2005Q1

REPORT INFORMATION
  Report Type: 
  Country: None (occurrence: None)
  Receive Date: 20050318
  Receipt Date: 20050308
  Transmission Date: 20050727
  Serious: Yes (Death)
  Sender: FDA-Public Use
  Company Number: 2005042293

PATIENT
  Age: 72 Year
  Sex: Female

DRUGS (1)
  1. CELEBRA (CELECOXIB) [Suspect]
     Indication: ILL-DEFINED DISORDER
     Dosage: 400 MG (200 , 2 IN 1 D), ORAL
     Route: 048
     Dates: start: 20041004, end: 20041005

REACTIONS (3)
  - ACUTE MYOCARDIAL INFARCTION [None]
  - CARDIAC FAILURE ACUTE [None]
  - SUDDEN DEATH [None]
